FAERS Safety Report 8230925-0 (Version None)
Quarter: 2012Q1

REPORT INFORMATION
  Report Type: 
  Country: None (occurrence: None)
  Receive Date: 20120323
  Receipt Date: 20120312
  Transmission Date: 20120608
  Serious: Yes (Other)
  Sender: FDA-Public Use
  Company Number: DE-FRI-1000029190

PATIENT
  Age: 77 Year
  Sex: Female
  Weight: 68 kg

DRUGS (3)
  1. ROFLUMILAST [Suspect]
     Indication: CHRONIC OBSTRUCTIVE PULMONARY DISEASE
     Dosage: 1 DOSAGE FORMS
     Route: 048
     Dates: start: 20110225, end: 20110512
  2. AZITHROMYCIN [Concomitant]
     Indication: WHEEZING
     Dates: start: 20110301, end: 20110301
  3. AZITHROMYCIN [Concomitant]
     Indication: RHONCHI

REACTIONS (6)
  - MELAENA [None]
  - NAUSEA [None]
  - GASTRIC HAEMORRHAGE [None]
  - ABDOMINAL PAIN [None]
  - DUODENAL ULCER [None]
  - GASTRITIS [None]
